FAERS Safety Report 4314054-4 (Version None)
Quarter: 2004Q1

REPORT INFORMATION
  Report Type: 
  Country: None (occurrence: None)
  Receive Date: 20040308
  Receipt Date: 20040308
  Transmission Date: 20041129
  Serious: Yes (Other)
  Sender: FDA-Public Use
  Company Number: None

PATIENT
  Age: 49 Year
  Sex: Female
  Weight: 61.2356 kg

DRUGS (1)
  1. LEVAQUIN [Suspect]
     Indication: PNEUMONIA
     Dosage: 1 DAILY 10 DAYS ORAL
     Route: 048
     Dates: start: 20031110, end: 20031118

REACTIONS (7)
  - ARTHRALGIA [None]
  - CRYING [None]
  - IMPAIRED DRIVING ABILITY [None]
  - IMPAIRED WORK ABILITY [None]
  - MOBILITY DECREASED [None]
  - MYALGIA [None]
  - SLEEP DISORDER [None]
